FAERS Safety Report 24291712 (Version 7)
Quarter: 2025Q1

REPORT INFORMATION
  Report Type: Spontaneous
  Country: IN (occurrence: IN)
  Receive Date: 20240906
  Receipt Date: 20250305
  Transmission Date: 20250409
  Serious: Yes (Hospitalization)
  Sender: PFIZER
  Company Number: IN-PFIZER INC-PV202400114727

PATIENT
  Age: 62 Year
  Sex: Female

DRUGS (3)
  1. DACOMITINIB [Suspect]
     Active Substance: DACOMITINIB
     Indication: Non-small cell lung cancer metastatic
     Dosage: 45 MG, 1X/DAY
     Route: 048
  2. DACOMITINIB [Suspect]
     Active Substance: DACOMITINIB
     Dosage: 30 MG, 1X/DAY
     Route: 048
  3. ZOLEDRONIC ACID [Concomitant]
     Active Substance: ZOLEDRONIC ACID
     Indication: Bone disorder

REACTIONS (12)
  - Illness [Unknown]
  - Hypersensitivity [Unknown]
  - Diarrhoea [Unknown]
  - Pallor [Unknown]
  - Pain [Unknown]
  - Asthenia [Unknown]
  - Rash pruritic [Unknown]
  - Palmar-plantar erythrodysaesthesia syndrome [Unknown]
  - Pruritus [Unknown]
  - Blood pressure increased [Unknown]
  - Mucosal inflammation [Unknown]
  - Nail disorder [Unknown]

NARRATIVE: CASE EVENT DATE: 20241026
